FAERS Safety Report 17256828 (Version 1)
Quarter: 2020Q1

REPORT INFORMATION
  Report Type: Other
  Country: SE (occurrence: SE)
  Receive Date: 20200110
  Receipt Date: 20200110
  Transmission Date: 20200409
  Serious: Yes (Hospitalization)
  Sender: FDA-Public Use
  Company Number: SE-SUNRISE PHARMACEUTICAL, INC.-2078809

PATIENT
  Age: 28 Year
  Sex: Male

DRUGS (4)
  1. PREGABALIN. [Suspect]
     Active Substance: PREGABALIN
     Route: 065
  2. OXYCODONE HYDROCHLORIDE. [Suspect]
     Active Substance: OXYCODONE HYDROCHLORIDE
     Indication: PRODUCT USED FOR UNKNOWN INDICATION
     Route: 065
  3. ACETYLFENTANYL [Suspect]
     Active Substance: ACETYLFENTANYL
     Route: 065
  4. FLUDIAZEPAM [Suspect]
     Active Substance: FLUDIAZEPAM
     Route: 065

REACTIONS (6)
  - Apnoea [Recovered/Resolved]
  - Tachycardia [Unknown]
  - Toxicity to various agents [Unknown]
  - Respiratory depression [Unknown]
  - Intentional overdose [Unknown]
  - Depressed level of consciousness [Unknown]
